FAERS Safety Report 8315054-X (Version None)
Quarter: 2012Q2

REPORT INFORMATION
  Report Type: 
  Country: None (occurrence: None)
  Receive Date: 20120426
  Receipt Date: 20120416
  Transmission Date: 20120825
  Serious: No
  Sender: FDA-Public Use
  Company Number: US-JNJFOC-20120408278

PATIENT
  Age: 55 Year
  Sex: Male
  Weight: 97.07 kg

DRUGS (9)
  1. FENTANYL-100 [Suspect]
     Indication: BACK PAIN
     Route: 062
     Dates: start: 20090101
  2. VOLTAREN [Concomitant]
     Indication: INFLAMMATION
     Route: 048
     Dates: start: 20010101
  3. FLEXERIL [Concomitant]
     Indication: MUSCLE SPASMS
     Route: 048
     Dates: start: 20010101
  4. FENTANYL-100 [Suspect]
     Indication: BACK PAIN
     Route: 062
     Dates: start: 20060101, end: 20090101
  5. LORAZEPAM [Concomitant]
     Indication: ANXIETY
     Route: 048
     Dates: start: 20040101
  6. PERCOCET [Concomitant]
     Indication: PAIN
     Route: 048
     Dates: start: 20060801
  7. LYRICA [Concomitant]
     Indication: NEURALGIA
     Dosage: 300-150 MG BID
     Route: 048
     Dates: start: 20050101
  8. BENTYL [Concomitant]
     Indication: COLON OPERATION
     Dosage: EVERY 6 HOURS AS NEEDED
     Route: 048
     Dates: start: 19960101
  9. TOPROL-XL [Concomitant]
     Indication: HYPERTENSION
     Route: 048
     Dates: start: 20050101

REACTIONS (6)
  - DRUG ADMINISTERED AT INAPPROPRIATE SITE [None]
  - PRODUCT OUTER PACKAGING ISSUE [None]
  - DYSURIA [None]
  - POOR QUALITY DRUG ADMINISTERED [None]
  - WRONG TECHNIQUE IN DRUG USAGE PROCESS [None]
  - BLISTER [None]
